FAERS Safety Report 8817393 (Version 2)
Quarter: 2012Q4

REPORT INFORMATION
  Report Type: 
  Country: MW (occurrence: MW)
  Receive Date: 20121004
  Receipt Date: 20121016
  Transmission Date: 20130627
  Serious: Yes (Hospitalization)
  Sender: FDA-Public Use
  Company Number: MW-PFIZER INC-2012242618

PATIENT
  Age: 14 Year
  Sex: Female
  Weight: 47 kg

DRUGS (1)
  1. ZITHROMAX [Suspect]
     Dosage: 250 mg x 4, single
     Route: 048
     Dates: start: 20120927

REACTIONS (3)
  - Abdominal pain [Recovered/Resolved]
  - Loss of consciousness [Recovered/Resolved]
  - Dizziness [Recovered/Resolved]
